FAERS Safety Report 6463962-7 (Version None)
Quarter: 2009Q4

REPORT INFORMATION
  Report Type: 
  Country: None (occurrence: None)
  Receive Date: 20091201
  Receipt Date: 20091118
  Transmission Date: 20100525
  Serious: Yes (Other)
  Sender: FDA-Public Use
  Company Number: US-JNJFOC-20091107901

PATIENT
  Age: 12 Year
  Sex: Female

DRUGS (1)
  1. TRAMADOL HYDROCHLORIDE [Suspect]
     Indication: TOOTHACHE
     Route: 065

REACTIONS (2)
  - MALAISE [None]
  - WRONG DRUG ADMINISTERED [None]
